FAERS Safety Report 22393256 (Version 1)
Quarter: 2023Q2

REPORT INFORMATION
  Report Type: Report from Study
  Country: AE (occurrence: None)
  Receive Date: 20230601
  Receipt Date: 20230601
  Transmission Date: 20230721
  Serious: Yes (Hospitalization)
  Sender: FDA-Public Use
  Company Number: 2023A122117

PATIENT
  Age: 36 Year
  Sex: Female
  Weight: 57 kg

DRUGS (16)
  1. EVUSHELD [Suspect]
     Active Substance: CILGAVIMAB\TIXAGEVIMAB
     Indication: COVID-19 treatment
     Dosage: 600.0MG ONCE/SINGLE ADMINISTRATION
     Route: 030
     Dates: start: 20221019
  2. MAALOX ANTACID [Concomitant]
     Active Substance: ALUMINUM HYDROXIDE\DIMETHICONE\MAGNESIUM HYDROXIDE
     Indication: Gastrooesophageal reflux disease
     Route: 048
     Dates: start: 20220910
  3. ONDANSETRON [Concomitant]
     Active Substance: ONDANSETRON
     Indication: Nausea
     Route: 042
     Dates: start: 20220910
  4. ONDANSETRON [Concomitant]
     Active Substance: ONDANSETRON
     Indication: Burn infection
     Route: 042
     Dates: start: 20220910
  5. ONDANSETRON [Concomitant]
     Active Substance: ONDANSETRON
     Indication: Nausea
     Route: 048
     Dates: start: 20221022
  6. ONDANSETRON [Concomitant]
     Active Substance: ONDANSETRON
     Indication: Burn infection
     Route: 048
     Dates: start: 20221022
  7. VIASOL [Concomitant]
     Indication: Gastrooesophageal reflux disease
     Route: 048
     Dates: start: 20220910
  8. ACETAMINOPHEN [Concomitant]
     Active Substance: ACETAMINOPHEN
     Indication: Pain
     Route: 042
     Dates: start: 20220910
  9. MIVASTAT [Concomitant]
     Indication: Oral fungal infection
     Route: 048
     Dates: start: 20220911
  10. METOCLOPRAMIDE [Concomitant]
     Active Substance: METOCLOPRAMIDE
     Indication: Nausea
     Route: 042
     Dates: start: 20220917
  11. METOCLOPRAMIDE [Concomitant]
     Active Substance: METOCLOPRAMIDE
     Indication: Vomiting
     Route: 042
     Dates: start: 20220917
  12. DORMICUM [Concomitant]
     Indication: Pain
     Route: 042
     Dates: start: 20220927
  13. ZYPREXA [Concomitant]
     Active Substance: OLANZAPINE
     Indication: Depression
     Route: 048
     Dates: start: 20221010
  14. PIPERACILLIN SODIUM\TAZOBACTAM SODIUM [Concomitant]
     Active Substance: PIPERACILLIN SODIUM\TAZOBACTAM SODIUM
     Indication: Pyrexia
     Route: 042
     Dates: start: 20221014
  15. DUPHALAC [Concomitant]
     Active Substance: LACTULOSE
     Indication: Constipation
     Route: 048
     Dates: start: 20221017
  16. OXYCODONE HYDROCHLORIDE [Concomitant]
     Active Substance: OXYCODONE HYDROCHLORIDE
     Indication: Pain
     Route: 048
     Dates: start: 20221017

REACTIONS (1)
  - Angioedema [Recovered/Resolved]

NARRATIVE: CASE EVENT DATE: 20230517
